FAERS Safety Report 25306175 (Version 3)
Quarter: 2025Q4

REPORT INFORMATION
  Report Type: Report from Study
  Country: IN (occurrence: IN)
  Receive Date: 20250513
  Receipt Date: 20251209
  Transmission Date: 20260117
  Serious: Yes (Hospitalization)
  Sender: DR REDDYS
  Company Number: IN-RDY-CLI/IND/24/0011372

PATIENT
  Age: 76 Year
  Sex: Female
  Weight: 52.7 kg

DRUGS (23)
  1. SACUBITRIL\VALSARTAN [Suspect]
     Active Substance: SACUBITRIL\VALSARTAN
     Indication: Heart failure with reduced ejection fraction
     Dosage: 1/2 BD
     Route: 048
     Dates: start: 20240604
  2. SACUBITRIL\VALSARTAN [Suspect]
     Active Substance: SACUBITRIL\VALSARTAN
     Indication: Heart failure with midrange ejection fraction
  3. ATORVASTATIN CALCIUM [Concomitant]
     Active Substance: ATORVASTATIN CALCIUM
     Indication: Cardiovascular event prophylaxis
     Route: 048
     Dates: start: 20240425
  4. CARDIVAS [Concomitant]
     Indication: Cardiovascular event prophylaxis
     Route: 048
     Dates: start: 20240413
  5. LASIX [Concomitant]
     Active Substance: FUROSEMIDE
     Indication: Diuretic therapy
     Route: 048
     Dates: start: 20240425
  6. ALDACTONE [Concomitant]
     Active Substance: SPIRONOLACTONE
     Indication: Diuretic therapy
     Route: 048
     Dates: start: 20240425
  7. VERQUVO [Concomitant]
     Active Substance: VERICIGUAT
     Indication: Cardiovascular event prophylaxis
     Route: 048
     Dates: start: 20240425
  8. TICAGRELOR [Concomitant]
     Active Substance: TICAGRELOR
     Indication: Antiplatelet therapy
     Route: 048
     Dates: start: 20240625
  9. Dapaglyn [Concomitant]
     Indication: Cardiovascular event prophylaxis
     Route: 048
     Dates: start: 20240605
  10. ASPIRIN [Concomitant]
     Active Substance: ASPIRIN
     Indication: Antiplatelet therapy
     Route: 048
     Dates: start: 20240605
  11. Pan [Concomitant]
     Indication: Gastrointestinal disorder prophylaxis
     Route: 048
     Dates: start: 20240425
  12. CLOPIDOGREL BISULFATE [Concomitant]
     Active Substance: CLOPIDOGREL BISULFATE
     Indication: Antiplatelet therapy
     Route: 048
     Dates: start: 20240425
  13. SACUBITRIL\VALSARTAN [Concomitant]
     Active Substance: SACUBITRIL\VALSARTAN
     Indication: Cardiovascular event prophylaxis
     Dosage: 1/2 TWICE PER DAY
     Route: 048
     Dates: start: 20240425, end: 20240603
  14. ATOCAR [Concomitant]
     Indication: Lipids increased
     Dosage: 1/2 TWICE PER DAY
     Route: 048
     Dates: start: 20240425, end: 20240603
  15. ERTAPENEM [Concomitant]
     Active Substance: ERTAPENEM
     Indication: Diabetic foot
     Route: 042
     Dates: start: 20240813
  16. HUMALOG [Concomitant]
     Active Substance: INSULIN LISPRO
     Indication: Diabetes prophylaxis
     Dosage: 25/75 UNIT
     Route: 058
     Dates: start: 20240813
  17. Glizato [Concomitant]
     Indication: Diabetes prophylaxis
     Route: 048
     Dates: start: 20240813
  18. Sugaflo [Concomitant]
     Indication: Diabetes prophylaxis
     Route: 048
     Dates: start: 20240813
  19. Dolo [Concomitant]
     Indication: Pyrexia
     Dosage: IF REQUIRED
     Route: 048
     Dates: start: 20240613
  20. CARDIVAS [Concomitant]
     Indication: Angina pectoris
     Route: 048
     Dates: start: 20240425
  21. VERICIGUAT [Concomitant]
     Active Substance: VERICIGUAT
     Indication: Cardiovascular event prophylaxis
     Route: 048
     Dates: start: 20240426
  22. Lepituss [Concomitant]
     Indication: Antitussive therapy
     Route: 048
     Dates: start: 20240808
  23. MEROPENEM [Concomitant]
     Active Substance: MEROPENEM
     Indication: Diabetic foot
     Dosage: 6 DAYS GIVEN THEN CHANGED TO ERTAPENEM
     Route: 042
     Dates: start: 20240813

REACTIONS (2)
  - Debridement [Recovered/Resolved]
  - Amputation [Recovered/Resolved]

NARRATIVE: CASE EVENT DATE: 20240801
